FAERS Safety Report 6247598-9 (Version None)
Quarter: 2009Q2

REPORT INFORMATION
  Report Type: 
  Country: None (occurrence: None)
  Receive Date: 20090626
  Receipt Date: 20090615
  Transmission Date: 20091009
  Serious: Yes (Other)
  Sender: FDA-Public Use
  Company Number: US-GENENTECH-285537

PATIENT

DRUGS (4)
  1. HERCEPTIN [Suspect]
     Indication: BREAST CANCER METASTATIC
     Dosage: 4 MG/KG, UNK
     Route: 042
  2. HERCEPTIN [Suspect]
     Dosage: 2 MG/KG, 1/WEEK
     Route: 042
  3. AFINITOR [Suspect]
     Indication: BREAST CANCER METASTATIC
     Dosage: UNK
     Route: 065
  4. PACLITAXEL [Suspect]
     Indication: BREAST CANCER METASTATIC
     Dosage: 80 MG/M2, UNK
     Route: 042

REACTIONS (3)
  - CONFUSIONAL STATE [None]
  - DRUG RESISTANCE [None]
  - FEBRILE NEUTROPENIA [None]
